FAERS Safety Report 21956545 (Version 1)
Quarter: 2023Q1

REPORT INFORMATION
  Report Type: Spontaneous
  Country: JP (occurrence: JP)
  Receive Date: 20230206
  Receipt Date: 20230206
  Transmission Date: 20230418
  Serious: Yes (Other)
  Sender: FDA-Public Use
  Company Number: JP-BAYER-2023A012237

PATIENT
  Age: 42 Year
  Sex: Female
  Weight: 45.2 kg

DRUGS (1)
  1. BETAFERON [Suspect]
     Active Substance: INTERFERON BETA-1B
     Indication: Multiple sclerosis
     Dosage: QOD
     Route: 058
     Dates: start: 2010

REACTIONS (1)
  - Glomerulonephritis [None]
